FAERS Safety Report 8155234-X (Version None)
Quarter: 2012Q1

REPORT INFORMATION
  Report Type: 
  Country: None (occurrence: None)
  Receive Date: 20120222
  Receipt Date: 20120214
  Transmission Date: 20120608
  Serious: Yes (Hospitalization)
  Sender: FDA-Public Use
  Company Number: US-BIOGENIDEC-2012BI005678

PATIENT
  Age: 48 Year
  Sex: Female

DRUGS (2)
  1. PNEUMONIA VACCINE [Concomitant]
  2. AVONEX [Suspect]
     Indication: MULTIPLE SCLEROSIS
     Route: 030
     Dates: start: 20011214

REACTIONS (3)
  - ENTERITIS INFECTIOUS [None]
  - PAIN MANAGEMENT [None]
  - ALLERGY TO VACCINE [None]
